FAERS Safety Report 11708122 (Version 1)
Quarter: 2015Q4

REPORT INFORMATION
  Report Type: Spontaneous
  Country: US (occurrence: US)
  Receive Date: 20151107
  Receipt Date: 20151107
  Transmission Date: 20160304
  Serious: Yes (Hospitalization, Other)
  Sender: FDA-Public Use
  Company Number: US-AMGEN-USASP2015115293

PATIENT
  Age: 66 Year
  Sex: Male

DRUGS (1)
  1. ENBREL [Suspect]
     Active Substance: ETANERCEPT
     Indication: RHEUMATOID ARTHRITIS
     Dosage: 50 MG, QWK
     Route: 065
     Dates: start: 2012, end: 2015

REACTIONS (5)
  - Aspiration [Unknown]
  - Pneumothorax [Unknown]
  - Muscle disorder [Unknown]
  - Respiratory failure [Unknown]
  - Lung infection [Not Recovered/Not Resolved]
